FAERS Safety Report 5280660-6 (Version None)
Quarter: 2007Q1

REPORT INFORMATION
  Report Type: 
  Country: None (occurrence: None)
  Receive Date: 20070329
  Receipt Date: 20070319
  Transmission Date: 20070707
  Serious: Yes (Other)
  Sender: FDA-Public Use
  Company Number: US-PFIZER INC-2006132411

PATIENT
  Sex: Female
  Weight: 56.2 kg

DRUGS (9)
  1. LIPITOR [Suspect]
     Indication: BLOOD CHOLESTEROL INCREASED
  2. CELEBREX [Suspect]
     Indication: ARTHRITIS
  3. CHANTIX [Suspect]
     Indication: SMOKING CESSATION THERAPY
     Dates: start: 20061020, end: 20061115
  4. LASIX [Suspect]
  5. INSULIN [Concomitant]
  6. PLAVIX [Concomitant]
  7. GLUCOVANCE [Concomitant]
  8. CALCIUM [Concomitant]
  9. VITAMINS [Concomitant]

REACTIONS (8)
  - CATARACT OPERATION [None]
  - DIZZINESS [None]
  - GALLBLADDER OPERATION [None]
  - INSOMNIA [None]
  - KNEE OPERATION [None]
  - MALAISE [None]
  - SURGERY [None]
  - VOMITING [None]
